FAERS Safety Report 4377395-0 (Version None)
Quarter: 2004Q2

REPORT INFORMATION
  Report Type: 
  Country: None (occurrence: None)
  Receive Date: 20040609
  Receipt Date: 20040524
  Transmission Date: 20050107
  Serious: Yes (Hospitalization)
  Sender: FDA-Public Use
  Company Number: DE_030411134

PATIENT
  Age: 53 Year
  Sex: Male

DRUGS (3)
  1. CIALIS [Suspect]
  2. ALLOPURINOL [Concomitant]
  3. QUANTALAN (COLESTYRAMINE) [Concomitant]

REACTIONS (13)
  - APHASIA [None]
  - BLOOD CHOLESTEROL INCREASED [None]
  - BLOOD PRESSURE INCREASED [None]
  - BLOOD TRIGLYCERIDES INCREASED [None]
  - CEREBROVASCULAR ACCIDENT [None]
  - GLOSSOPHARYNGEAL NERVE PARALYSIS [None]
  - HAEMORRHAGE INTRACRANIAL [None]
  - HEMIPARESIS [None]
  - HEMIPLEGIA [None]
  - MOTOR DYSFUNCTION [None]
  - PUPILS UNEQUAL [None]
  - TONGUE PARALYSIS [None]
  - VIITH NERVE PARALYSIS [None]
